FAERS Safety Report 7796396-3 (Version None)
Quarter: 2011Q4

REPORT INFORMATION
  Report Type: 
  Country: None (occurrence: None)
  Receive Date: 20111005
  Receipt Date: 20110926
  Transmission Date: 20120403
  Serious: No
  Sender: FDA-Public Use
  Company Number: US-BIOGENIDEC-2011BI033782

PATIENT
  Age: 47 Year
  Sex: Female

DRUGS (1)
  1. TYSABRI [Suspect]
     Indication: MULTIPLE SCLEROSIS
     Route: 042
     Dates: start: 20110422

REACTIONS (8)
  - COGNITIVE DISORDER [None]
  - DRY EYE [None]
  - FATIGUE [None]
  - MUSCULAR WEAKNESS [None]
  - EYE INFECTION [None]
  - HEADACHE [None]
  - MUSCLE SPASMS [None]
  - SINUSITIS [None]
